FAERS Safety Report 4457628-2 (Version None)
Quarter: 2004Q3

REPORT INFORMATION
  Report Type: 
  Country: None (occurrence: None)
  Receive Date: 20040922
  Receipt Date: 20040908
  Transmission Date: 20050211
  Serious: Yes (Death)
  Sender: FDA-Public Use
  Company Number: 2004S1002703

PATIENT
  Age: 78 Year
  Sex: Male

DRUGS (2)
  1. CLOZAPINE [Suspect]
     Dosage: 25MG Q HS, ORAL
     Route: 048
     Dates: start: 20020901
  2. CARBIDOPA/LEVODOPA(25MG/100MG QID, 06/30 ) [Concomitant]

REACTIONS (1)
  - DEATH [None]
